FAERS Safety Report 21192529 (Version 2)
Quarter: 2022Q3

REPORT INFORMATION
  Report Type: Report from Study
  Country: CO (occurrence: CO)
  Receive Date: 20220809
  Receipt Date: 20220831
  Transmission Date: 20221027
  Serious: Yes (Hospitalization, Other)
  Sender: FDA-Public Use
  Company Number: CO-JNJFOC-20210757251

PATIENT
  Age: 66 Year
  Sex: Male
  Weight: 68 kg

DRUGS (3)
  1. IMBRUVICA [Suspect]
     Active Substance: IBRUTINIB
     Indication: Chronic lymphocytic leukaemia
     Route: 048
     Dates: start: 20160704
  2. LEVOTHYROXINE [Concomitant]
     Active Substance: LEVOTHYROXINE
     Indication: Product used for unknown indication
  3. OXYGEN [Concomitant]
     Active Substance: OXYGEN
     Indication: Pneumonia

REACTIONS (5)
  - Influenza [Not Recovered/Not Resolved]
  - COVID-19 pneumonia [Recovered/Resolved with Sequelae]
  - Pulmonary thrombosis [Recovering/Resolving]
  - Neck mass [Recovering/Resolving]
  - Pneumonia [Recovering/Resolving]

NARRATIVE: CASE EVENT DATE: 20210725
